FAERS Safety Report 10402887 (Version 9)
Quarter: 2015Q4

REPORT INFORMATION
  Report Type: Spontaneous
  Country: US (occurrence: US)
  Receive Date: 20140822
  Receipt Date: 20151202
  Transmission Date: 20160304
  Serious: Yes (Disabling, Other)
  Sender: FDA-Public Use
  Company Number: US-ELI_LILLY_AND_COMPANY-US201408004707

PATIENT
  Sex: Male

DRUGS (23)
  1. CYMBALTA [Suspect]
     Active Substance: DULOXETINE HYDROCHLORIDE
     Indication: DEPRESSION
     Dosage: 30 MG, BID
     Route: 048
  2. CYMBALTA [Suspect]
     Active Substance: DULOXETINE HYDROCHLORIDE
     Dosage: 40 MG, BID
     Route: 048
  3. TYLENOL [Concomitant]
     Active Substance: ACETAMINOPHEN
  4. CYMBALTA [Suspect]
     Active Substance: DULOXETINE HYDROCHLORIDE
     Dosage: 30 MG, TID
     Route: 048
  5. CYMBALTA [Suspect]
     Active Substance: DULOXETINE HYDROCHLORIDE
     Dosage: 20 MG, QD
     Route: 048
     Dates: end: 20121022
  6. PROZAC [Concomitant]
     Active Substance: FLUOXETINE HYDROCHLORIDE
     Dosage: 20 MG, TID
     Route: 048
  7. CLARITIN [Concomitant]
     Active Substance: LORATADINE
  8. DIPHENHYDRAMINE. [Concomitant]
     Active Substance: DIPHENHYDRAMINE
  9. CLONIDINE                          /00171102/ [Concomitant]
     Active Substance: CLONIDINE
     Indication: SLEEP DISORDER
     Dosage: 0.1 MG, PRN
     Route: 065
     Dates: start: 20120725
  10. CYMBALTA [Suspect]
     Active Substance: DULOXETINE HYDROCHLORIDE
     Dosage: 75 MG, QD
     Route: 048
  11. CYMBALTA [Suspect]
     Active Substance: DULOXETINE HYDROCHLORIDE
     Dosage: 60 MG, QD
     Route: 048
  12. IBUPROFEN. [Concomitant]
     Active Substance: IBUPROFEN
     Dosage: UNK, OTHER
     Route: 065
  13. LOTRIMIN ULTRA [Concomitant]
     Active Substance: BUTENAFINE HYDROCHLORIDE
     Indication: TINEA CRURIS
     Dosage: UNK, BID
     Route: 061
     Dates: start: 20111212, end: 20120117
  14. CYMBALTA [Suspect]
     Active Substance: DULOXETINE HYDROCHLORIDE
     Dosage: 40 MG, QD
     Route: 048
  15. INVEGA [Concomitant]
     Active Substance: PALIPERIDONE
     Indication: AGITATION
     Dosage: 1.5 - 3.0 MG, BID
     Route: 065
     Dates: start: 20120615
  16. CLONIDINE                          /00171102/ [Concomitant]
     Active Substance: CLONIDINE
     Indication: IRRITABILITY
  17. MYCOSTATIN [Concomitant]
     Active Substance: NYSTATIN
     Indication: TINEA CRURIS
     Dosage: UNK, QID
     Route: 061
     Dates: start: 20111212, end: 20120117
  18. CYMBALTA [Suspect]
     Active Substance: DULOXETINE HYDROCHLORIDE
     Indication: FIBROMYALGIA
     Dosage: 30 MG, QD
     Route: 048
     Dates: start: 20060810
  19. CYMBALTA [Suspect]
     Active Substance: DULOXETINE HYDROCHLORIDE
     Dosage: 70 MG, QD
     Route: 048
  20. FINASTERIDE. [Concomitant]
     Active Substance: FINASTERIDE
     Indication: ALOPECIA
     Dosage: 0.5 DF, QD
     Route: 048
  21. DIFLUCAN [Concomitant]
     Active Substance: FLUCONAZOLE
     Indication: TINEA CRURIS
     Dosage: 150 MG, SINGLE
     Route: 048
     Dates: start: 20111230, end: 20111230
  22. INVEGA [Concomitant]
     Active Substance: PALIPERIDONE
     Indication: IRRITABILITY
  23. LOTRISONE [Concomitant]
     Active Substance: BETAMETHASONE DIPROPIONATE\CLOTRIMAZOLE
     Indication: TINEA CRURIS
     Dosage: UNK, BID
     Route: 061
     Dates: start: 20111230, end: 20120117

REACTIONS (40)
  - Suicidal ideation [Unknown]
  - Dizziness [Not Recovered/Not Resolved]
  - Insomnia [Not Recovered/Not Resolved]
  - Tremor [Not Recovered/Not Resolved]
  - Eating disorder [Unknown]
  - Abdominal discomfort [Unknown]
  - Headache [Unknown]
  - Thinking abnormal [Unknown]
  - Urinary hesitation [Unknown]
  - Nausea [Unknown]
  - Paraesthesia [Not Recovered/Not Resolved]
  - Pain [Not Recovered/Not Resolved]
  - Reading disorder [Unknown]
  - Anxiety [Unknown]
  - Tremor [Unknown]
  - Activities of daily living impaired [Unknown]
  - Serotonin syndrome [Unknown]
  - Dyspnoea [Unknown]
  - Muscle spasms [Not Recovered/Not Resolved]
  - Hyperhidrosis [Not Recovered/Not Resolved]
  - Disturbance in attention [Unknown]
  - Influenza like illness [Unknown]
  - Automatic bladder [Unknown]
  - Libido decreased [Unknown]
  - Amnesia [Unknown]
  - Crying [Unknown]
  - Nervousness [Unknown]
  - Urinary retention [Unknown]
  - Rash papular [Unknown]
  - Suicide attempt [Recovered/Resolved]
  - Vomiting [Not Recovered/Not Resolved]
  - Drug withdrawal syndrome [Unknown]
  - Vomiting [Unknown]
  - Diarrhoea [Not Recovered/Not Resolved]
  - Dependence [Unknown]
  - Nausea [Not Recovered/Not Resolved]
  - Palpitations [Not Recovered/Not Resolved]
  - Bladder pain [Unknown]
  - Fibromyalgia [Unknown]
  - Vision blurred [Unknown]
